FAERS Safety Report 6774806-8 (Version None)
Quarter: 2010Q2

REPORT INFORMATION
  Report Type: 
  Country: None (occurrence: None)
  Receive Date: 20100617
  Receipt Date: 20100605
  Transmission Date: 20101027
  Serious: Yes (Other)
  Sender: FDA-Public Use
  Company Number: DE-ROCHE-709227

PATIENT

DRUGS (2)
  1. AVASTIN [Suspect]
     Indication: RECTAL CANCER METASTATIC
  2. CHEMOTHERAPY NOS [Suspect]
     Indication: RECTAL CANCER METASTATIC

REACTIONS (2)
  - CONGENITAL ANOMALY [None]
  - PREGNANCY [None]
